FAERS Safety Report 24187335 (Version 2)
Quarter: 2024Q3

REPORT INFORMATION
  Report Type: Spontaneous
  Country: US (occurrence: US)
  Receive Date: 20240808
  Receipt Date: 20240925
  Transmission Date: 20241016
  Serious: Yes (Hospitalization, Other)
  Sender: TORRENT
  Company Number: US-TORRENT-00013701

PATIENT
  Sex: Male

DRUGS (2)
  1. ESCITALOPRAM [Suspect]
     Active Substance: ESCITALOPRAM OXALATE
     Indication: Product used for unknown indication
     Dosage: UNKNOWN
     Route: 064
  2. HYDROXYZINE [Suspect]
     Active Substance: HYDROXYZINE HYDROCHLORIDE
     Indication: Product used for unknown indication
     Dosage: UNKNOWN
     Route: 064

REACTIONS (6)
  - Foetal exposure during pregnancy [Unknown]
  - Musculoskeletal stiffness [Recovering/Resolving]
  - Tardive dyskinesia [Recovering/Resolving]
  - Shoulder dystocia [Unknown]
  - Neonatal asphyxia [Recovering/Resolving]
  - Feeling jittery [Recovering/Resolving]
